FAERS Safety Report 7705885-9 (Version None)
Quarter: 2011Q3

REPORT INFORMATION
  Report Type: 
  Country: None (occurrence: None)
  Receive Date: 20110824
  Receipt Date: 20110812
  Transmission Date: 20111222
  Serious: Yes (Other)
  Sender: FDA-Public Use
  Company Number: US-ELI_LILLY_AND_COMPANY-US201107001834

PATIENT
  Sex: Female

DRUGS (2)
  1. FORTEO [Suspect]
     Dosage: 20 UG, QD
     Dates: end: 20110729
  2. FORTEO [Suspect]
     Indication: OSTEOPOROSIS
     Dosage: 20 UG, QD
     Route: 065
     Dates: start: 20101101

REACTIONS (12)
  - BACK PAIN [None]
  - INFLUENZA LIKE ILLNESS [None]
  - ASTHENIA [None]
  - PAIN IN EXTREMITY [None]
  - ARTHRALGIA [None]
  - PAIN [None]
  - NAUSEA [None]
  - HIATUS HERNIA [None]
  - HEART RATE INCREASED [None]
  - HEART RATE IRREGULAR [None]
  - GASTROOESOPHAGEAL REFLUX DISEASE [None]
  - DIZZINESS [None]
